FAERS Safety Report 11548604 (Version 5)
Quarter: 2016Q2

REPORT INFORMATION
  Report Type: Report from Study
  Country: CA (occurrence: CA)
  Receive Date: 20150924
  Receipt Date: 20160622
  Transmission Date: 20160815
  Serious: Yes (Death, Hospitalization, Other)
  Sender: FDA-Public Use
  Company Number: CA-VALIDUS PHARMACEUTICALS LLC-CA-2015VAL000593

PATIENT

DRUGS (4)
  1. METOPROLOL TARTRATE. [Suspect]
     Active Substance: METOPROLOL TARTRATE
     Indication: PRODUCT USED FOR UNKNOWN INDICATION
     Dosage: 25 MG, BID
     Route: 048
  2. SANDOSTATIN [Suspect]
     Active Substance: OCTREOTIDE ACETATE
     Indication: NEUROENDOCRINE TUMOUR
     Dosage: ONCE/SINGLE, TEST DOSE
     Route: 058
     Dates: start: 20140206, end: 20140206
  3. SANDOSTATIN [Suspect]
     Active Substance: OCTREOTIDE ACETATE
     Dosage: 30 MG, QMO (EVERY 4 WEEKS FOR 4 DOSES)
     Route: 030
     Dates: start: 20140307
  4. SANDOSTATIN [Suspect]
     Active Substance: OCTREOTIDE ACETATE
     Indication: NEUROENDOCRINE TUMOUR
     Dosage: 20 MG, QMO (EVERY 4 WEEKS), SANDOSTATIN LAR
     Route: 030
     Dates: start: 20140307

REACTIONS (21)
  - Abdominal pain [Unknown]
  - Cataract [Unknown]
  - Blood potassium decreased [Recovered/Resolved]
  - Blood electrolytes decreased [Recovered/Resolved]
  - Nausea [Unknown]
  - Abdominal pain upper [Unknown]
  - Poor quality sleep [Unknown]
  - Blood pressure increased [Unknown]
  - Weight increased [Unknown]
  - Diarrhoea [Unknown]
  - Cancer pain [Unknown]
  - Malignant neoplasm progression [Unknown]
  - Malaise [Unknown]
  - Blood pressure diastolic decreased [Unknown]
  - Weight decreased [Unknown]
  - Death [Fatal]
  - Flatulence [Unknown]
  - Pain [Unknown]
  - Gastric disorder [Unknown]
  - Back pain [Unknown]
  - Asthenia [Unknown]

NARRATIVE: CASE EVENT DATE: 2015
